FAERS Safety Report 22786482 (Version 2)
Quarter: 2023Q4

REPORT INFORMATION
  Report Type: Spontaneous
  Country: JP (occurrence: JP)
  Receive Date: 20230804
  Receipt Date: 20231003
  Transmission Date: 20240110
  Serious: Yes (Hospitalization)
  Sender: FDA-Public Use
  Company Number: JP-CHUGAI-2023023976AA

PATIENT
  Age: 8 Decade

DRUGS (1)
  1. ALECENSA [Suspect]
     Active Substance: ALECTINIB HYDROCHLORIDE
     Indication: Non-small cell lung cancer
     Route: 048

REACTIONS (2)
  - Hyponatraemia [Recovered/Resolved]
  - Dehydration [Unknown]

NARRATIVE: CASE EVENT DATE: 20230101
